FAERS Safety Report 18453114 (Version 1)
Quarter: 2020Q4

REPORT INFORMATION
  Report Type: Spontaneous
  Country: CN (occurrence: CN)
  Receive Date: 20201102
  Receipt Date: 20201102
  Transmission Date: 20210114
  Serious: Yes (Hospitalization, Other)
  Sender: FDA-Public Use
  Company Number: CN-BAYER-2020-082898

PATIENT
  Age: 79 Year
  Sex: Female
  Weight: 60 kg

DRUGS (6)
  1. ISOSORBIDE MONONITRATE. [Concomitant]
     Active Substance: ISOSORBIDE MONONITRATE
  2. AVELOX [Suspect]
     Active Substance: MOXIFLOXACIN HYDROCHLORIDE
     Indication: ANTI-INFECTIVE THERAPY
     Dosage: 0.4 G, QD
     Route: 041
     Dates: start: 20200417, end: 20200423
  3. AVELOX [Suspect]
     Active Substance: MOXIFLOXACIN HYDROCHLORIDE
     Indication: ANTI-INFECTIVE THERAPY
     Dosage: 0.4 G, QD
     Route: 048
     Dates: start: 20200414, end: 20200417
  4. CEFOPERAZONE;TAZOBACTAM [Concomitant]
     Active Substance: CEFOPERAZONE\TAZOBACTAM SODIUM
  5. SODIUM CHLORIDE. [Concomitant]
     Active Substance: SODIUM CHLORIDE
  6. AVELOX [Suspect]
     Active Substance: MOXIFLOXACIN HYDROCHLORIDE
     Indication: ANTI-INFECTIVE THERAPY
     Dosage: 0.4 G, QD
     Route: 048
     Dates: start: 20200423, end: 20200425

REACTIONS (4)
  - Epilepsy [Recovering/Resolving]
  - Depressed level of consciousness [Recovering/Resolving]
  - Drug ineffective [None]
  - Seizure [Recovering/Resolving]

NARRATIVE: CASE EVENT DATE: 202004
